FAERS Safety Report 8739502 (Version 2)
Quarter: 2012Q4

REPORT INFORMATION
  Report Type: 
  Country: JP (occurrence: JP)
  Receive Date: 20120823
  Receipt Date: 20120831
  Transmission Date: 20130627
  Serious: Yes (Other)
  Sender: FDA-Public Use
  Company Number: JP-PFIZER INC-2012187188

PATIENT
  Age: 73 Year
  Sex: Male
  Weight: 57 kg

DRUGS (2)
  1. LYRICA [Suspect]
     Indication: HYPOAESTHESIA
     Dosage: 150 mg, daily
     Route: 048
     Dates: start: 20120708, end: 20120801
  2. METHYCOBAL [Suspect]
     Dosage: 1500 ug, daily
     Route: 048

REACTIONS (3)
  - Normochromic normocytic anaemia [Recovered/Resolved]
  - White blood cell count decreased [Recovered/Resolved]
  - Dizziness [Recovered/Resolved]
